FAERS Safety Report 4944897-5 (Version None)
Quarter: 2006Q1

REPORT INFORMATION
  Report Type: 
  Country: None (occurrence: None)
  Receive Date: 20060109
  Receipt Date: 20050411
  Transmission Date: 20060701
  Serious: Yes (Other)
  Sender: FDA-Public Use
  Company Number: DSA_26267_2005

PATIENT
  Age: 85 Year
  Sex: Female
  Weight: 110.2 kg

DRUGS (4)
  1. CARDIZEM [Suspect]
     Dosage: DF
  2. TRACLEER [Suspect]
     Indication: MITRAL VALVE PROLAPSE
     Dosage: 62.5 MG BID PO
     Route: 048
     Dates: start: 20040701, end: 20041018
  3. TRACLEER [Suspect]
     Indication: PULMONARY HYPERTENSION
     Dosage: 62.5 MG BID PO
     Route: 048
     Dates: start: 20040701, end: 20041018
  4. DYNACIRC [Suspect]
     Dosage: DF

REACTIONS (2)
  - DYSPNOEA [None]
  - OEDEMA PERIPHERAL [None]
